FAERS Safety Report 25040852 (Version 1)
Quarter: 2025Q1

REPORT INFORMATION
  Report Type: Spontaneous
  Country: US (occurrence: US)
  Receive Date: 20250305
  Receipt Date: 20250305
  Transmission Date: 20250409
  Serious: Yes (Other)
  Sender: ALCON
  Company Number: US-ALCON LABORATORIES-ALC2025US000987

PATIENT
  Age: 69 Year
  Sex: Male

DRUGS (1)
  1. SYSTANE NIGHTTIME [Suspect]
     Active Substance: MINERAL OIL\PETROLATUM
     Indication: Dry eye
     Route: 047
     Dates: start: 20230520, end: 20230525

REACTIONS (4)
  - Corneal abrasion [Recovered/Resolved]
  - Drug ineffective [Unknown]
  - Liquid product physical issue [Unknown]
  - Wrong product procured [Unknown]

NARRATIVE: CASE EVENT DATE: 20230501
